FAERS Safety Report 9862129 (Version 1)
Quarter: 2014Q1

REPORT INFORMATION
  Report Type: Spontaneous
  Country: IN (occurrence: IN)
  Receive Date: 20140203
  Receipt Date: 20140203
  Transmission Date: 20141002
  Serious: Yes (Other)
  Sender: FDA-Public Use
  Company Number: IN-MYLANLABS-2014S1001469

PATIENT
  Age: 40 Year
  Sex: Female

DRUGS (3)
  1. LATANOPROST [Suspect]
     Indication: GLAUCOMA
     Dosage: 0.005% LATANOPROST EYE DROPS
     Route: 061
     Dates: start: 2010
  2. FLUOROMETHOLONE [Concomitant]
     Indication: EYE INFLAMMATION
     Dosage: EYE DROPS
     Route: 061
  3. BETAXOLOL [Concomitant]
     Indication: GLAUCOMA
     Dosage: 0.5% BETAXOLOL TWICE PER DAY
     Route: 065

REACTIONS (2)
  - Cytomegalovirus infection [Recovered/Resolved]
  - Viral uveitis [Recovered/Resolved]
